FAERS Safety Report 10083369 (Version 1)
Quarter: 2014Q2

REPORT INFORMATION
  Report Type: Spontaneous
  Country: US (occurrence: None)
  Receive Date: 20140415
  Receipt Date: 20140415
  Transmission Date: 20141212
  Serious: No
  Sender: FDA-Public Use
  Company Number: None

PATIENT
  Age: 43 Year
  Sex: Female
  Weight: 72.58 kg

DRUGS (2)
  1. AZITHROMYCIN TABLETS 250 MG SANDOZ [Suspect]
     Indication: OROPHARYNGEAL PAIN
     Dosage: 1-2/6 ONCE DAILY TAKEN BY MOUTH
     Route: 048
     Dates: start: 20140409, end: 20140413
  2. AZITHROMYCIN TABLETS 250 MG SANDOZ [Suspect]
     Indication: SINUSITIS
     Dosage: 1-2/6 ONCE DAILY TAKEN BY MOUTH
     Route: 048
     Dates: start: 20140409, end: 20140413

REACTIONS (1)
  - Pruritus [None]
